FAERS Safety Report 5527461-9 (Version None)
Quarter: 2007Q4

REPORT INFORMATION
  Report Type: 
  Country: None (occurrence: None)
  Receive Date: 20071128
  Receipt Date: 20071126
  Transmission Date: 20080405
  Serious: Yes (Other)
  Sender: FDA-Public Use
  Company Number: US-RB-008372-07

PATIENT
  Sex: Male
  Weight: 99 kg

DRUGS (1)
  1. SUBOXONE [Suspect]
     Dosage: 4 MG INITIAL INDUCTION DOSE
     Route: 060
     Dates: start: 20071017

REACTIONS (6)
  - CONVULSION [None]
  - DIARRHOEA [None]
  - MUSCULAR WEAKNESS [None]
  - NAUSEA [None]
  - PYREXIA [None]
  - VOMITING [None]
